FAERS Safety Report 16205330 (Version 6)
Quarter: 2019Q2

REPORT INFORMATION
  Report Type: Spontaneous
  Country: US (occurrence: US)
  Receive Date: 20190417
  Receipt Date: 20190523
  Transmission Date: 20190711
  Serious: No
  Sender: FDA-Public Use
  Company Number: US-009507513-1904USA000565

PATIENT
  Age: 19 Year
  Sex: Female
  Weight: 68.03 kg

DRUGS (2)
  1. NUVARING [Concomitant]
     Active Substance: ETHINYL ESTRADIOL\ETONOGESTREL
     Indication: CONTRACEPTION
     Dosage: 1 RING, Q3W, TOTAL DAILY DOSAG: 0.120 MG/0.015 MG
     Route: 067
     Dates: start: 20190324, end: 20190326
  2. NEXPLANON [Suspect]
     Active Substance: ETONOGESTREL
     Indication: CONTRACEPTION
     Dosage: 1 NEXPLANON IN THE LEFT ARM, QD PER 3 YEARS
     Route: 059
     Dates: start: 20190305

REACTIONS (5)
  - Complication associated with device [Not Recovered/Not Resolved]
  - Implant site haemorrhage [Recovered/Resolved]
  - Implant site pain [Recovered/Resolved]
  - Device expulsion [Unknown]
  - Product dose omission [Unknown]

NARRATIVE: CASE EVENT DATE: 20190306
